FAERS Safety Report 20862089 (Version 1)
Quarter: 2022Q2

REPORT INFORMATION
  Report Type: Spontaneous
  Country: US (occurrence: None)
  Receive Date: 20220520
  Receipt Date: 20220520
  Transmission Date: 20220721
  Serious: Yes (Life-Threatening, Hospitalization)
  Sender: FDA-Public Use
  Company Number: None

PATIENT
  Age: 63 Year
  Sex: Female
  Weight: 67.13 kg

DRUGS (5)
  1. METOPROLOL SUCCINATE [Suspect]
     Active Substance: METOPROLOL SUCCINATE
     Indication: Arrhythmia
     Dosage: FREQUENCY : DAILY;?
     Route: 048
     Dates: start: 20200306, end: 20210520
  2. CARVEDILOL [Suspect]
     Active Substance: CARVEDILOL
     Indication: Arrhythmia
     Dosage: FREQUENCY : DAILY;?
     Route: 048
     Dates: start: 20210603
  3. BIOTRONIK CARDIOVERTER DEFIBRILLATOR [Concomitant]
  4. ZINC [Concomitant]
     Active Substance: ZINC
  5. VITAMIN D3 [Concomitant]
     Active Substance: CHOLECALCIFEROL

REACTIONS (7)
  - Heart rate decreased [None]
  - Implantable defibrillator insertion [None]
  - Chest discomfort [None]
  - Cough [None]
  - Paraesthesia [None]
  - Fatigue [None]
  - Therapy cessation [None]
